FAERS Safety Report 9890922 (Version 1)
Quarter: 2014Q1

REPORT INFORMATION
  Report Type: Spontaneous
  Country: US (occurrence: None)
  Receive Date: 20140207
  Receipt Date: 20140207
  Transmission Date: 20141002
  Serious: Yes (Death)
  Sender: FDA-Public Use
  Company Number: UTC-043913

PATIENT
  Age: 47 Year
  Sex: Female

DRUGS (10)
  1. TYVASO [Suspect]
     Indication: PULMONARY ARTERIAL HYPERTENSION
     Dosage: 42 MCG, 4 IN 1 D
     Route: 055
     Dates: start: 20120312
  2. TYVASO [Suspect]
     Indication: CARDIAC DISORDER
     Dosage: 42 MCG, 4 IN 1 D
     Route: 055
     Dates: start: 20120312
  3. ADCIRCA [Concomitant]
  4. FUROSEMIDE [Concomitant]
  5. SYNTHROID [Concomitant]
  6. LORTAB [Concomitant]
  7. CYMBALTA [Concomitant]
  8. ASPIRIN [Concomitant]
  9. PROPRANOLOL [Concomitant]
  10. PREDNISONE [Concomitant]

REACTIONS (1)
  - Myocardial infarction [None]
